FAERS Safety Report 10880629 (Version 1)
Quarter: 2015Q1

REPORT INFORMATION
  Report Type: Spontaneous
  Country: FR (occurrence: FR)
  Receive Date: 20150303
  Receipt Date: 20150303
  Transmission Date: 20150721
  Serious: Yes (Hospitalization)
  Sender: FDA-Public Use
  Company Number: FR-ROCHE-1545299

PATIENT
  Age: 84 Year
  Sex: Female
  Weight: 40 kg

DRUGS (15)
  1. EUPRESSYL [Concomitant]
     Active Substance: URAPIDIL
     Route: 065
     Dates: start: 20141215, end: 20141217
  2. WELLVONE [Concomitant]
     Active Substance: ATOVAQUONE
     Route: 065
     Dates: start: 20150127
  3. MABTHERA [Suspect]
     Active Substance: RITUXIMAB
     Route: 042
     Dates: start: 20141217
  4. DIFFU K [Concomitant]
     Active Substance: POTASSIUM CHLORIDE
     Route: 048
     Dates: start: 20141210, end: 20150206
  5. AMLODIPINE [Concomitant]
     Active Substance: AMLODIPINE BESYLATE
     Dosage: ARROW
     Route: 048
     Dates: start: 20150123
  6. LOXEN (FRANCE) [Concomitant]
     Active Substance: NICARDIPINE HYDROCHLORIDE
     Route: 065
     Dates: start: 20141214, end: 20141217
  7. MABTHERA [Suspect]
     Active Substance: RITUXIMAB
     Route: 042
     Dates: start: 20141224
  8. CORTANCYL [Concomitant]
     Active Substance: PREDNISONE
     Dosage: 40 THEN 20 MG PER DAY
     Route: 048
     Dates: start: 20141206
  9. MABTHERA [Suspect]
     Active Substance: RITUXIMAB
     Route: 042
     Dates: start: 20141210
  10. MABTHERA [Suspect]
     Active Substance: RITUXIMAB
     Indication: MICROSCOPIC POLYANGIITIS
     Route: 041
     Dates: start: 20141210
  11. INEXIUM [Concomitant]
     Active Substance: ESOMEPRAZOLE
     Route: 048
     Dates: start: 20141208
  12. MABTHERA [Suspect]
     Active Substance: RITUXIMAB
     Route: 042
     Dates: end: 20141231
  13. ARANESP [Concomitant]
     Active Substance: DARBEPOETIN ALFA
     Route: 058
     Dates: start: 20150211, end: 20150211
  14. NEBIVOLOL [Concomitant]
     Active Substance: NEBIVOLOL
     Dosage: 2.5 MG THEN 5 MG PER DAY
     Route: 048
     Dates: start: 20141209
  15. PREVENAR [Concomitant]
     Active Substance: PNEUMOCOCCAL 7-VALENT CONJUGATE VACCINE (DIPHTHERIA CRM197 PROTEIN)
     Route: 065
     Dates: start: 20141210

REACTIONS (3)
  - Neutropenia [Recovered/Resolved]
  - Agranulocytosis [Recovered/Resolved]
  - Leukopenia [Recovered/Resolved]

NARRATIVE: CASE EVENT DATE: 20150123
